FAERS Safety Report 6932515-6 (Version None)
Quarter: 2010Q3

REPORT INFORMATION
  Report Type: 
  Country: None (occurrence: None)
  Receive Date: 20100819
  Receipt Date: 20100811
  Transmission Date: 20110219
  Serious: Yes (Other)
  Sender: FDA-Public Use
  Company Number: CA-ASTRAZENECA-2010SE34260

PATIENT
  Age: 65 Year
  Sex: Female
  Weight: 54.4 kg

DRUGS (3)
  1. ARIMIDEX [Suspect]
     Route: 048
     Dates: start: 20070101
  2. LORAZEPAM [Concomitant]
     Indication: ANXIETY
  3. PREVACID [Concomitant]
     Indication: REFLUX OESOPHAGITIS

REACTIONS (9)
  - BONE PAIN [None]
  - CARPAL TUNNEL SYNDROME [None]
  - CHEST DISCOMFORT [None]
  - DIZZINESS [None]
  - HEPATIC ENZYME INCREASED [None]
  - PALPITATIONS [None]
  - TRIGGER FINGER [None]
  - VISION BLURRED [None]
  - VISUAL IMPAIRMENT [None]
